FAERS Safety Report 20643499 (Version 1)
Quarter: 2022Q1

REPORT INFORMATION
  Report Type: Spontaneous
  Country: US (occurrence: None)
  Receive Date: 20220326
  Receipt Date: 20220326
  Transmission Date: 20220423
  Serious: Yes (Other)
  Sender: FDA-Public Use
  Company Number: None

PATIENT
  Age: 36 Year
  Sex: Female
  Weight: 78.75 kg

DRUGS (6)
  1. DRONABINOL [Suspect]
     Active Substance: DRONABINOL
     Indication: Product used for unknown indication
     Dosage: 1O GUMMIES
     Route: 048
     Dates: start: 20220226, end: 20220226
  2. BUPROPION [Concomitant]
  3. Tri-lo-sprintec birth control [Concomitant]
  4. IBUPROFEN [Concomitant]
     Active Substance: IBUPROFEN
  5. ACETAMINOPHEN [Concomitant]
     Active Substance: ACETAMINOPHEN
  6. BENADRYL [Concomitant]
     Active Substance: DIPHENHYDRAMINE HYDROCHLORIDE

REACTIONS (13)
  - Hallucination, visual [None]
  - Confusional state [None]
  - Disorientation [None]
  - Imperception [None]
  - Hallucination, auditory [None]
  - Paranoia [None]
  - Agitation [None]
  - Tachycardia [None]
  - Amnesia [None]
  - Dry mouth [None]
  - Nausea [None]
  - Insomnia [None]
  - Memory impairment [None]

NARRATIVE: CASE EVENT DATE: 20220226
